FAERS Safety Report 23879629 (Version 1)
Quarter: 2024Q2

REPORT INFORMATION
  Report Type: Spontaneous
  Country: US (occurrence: US)
  Receive Date: 20240521
  Receipt Date: 20240521
  Transmission Date: 20240716
  Serious: No
  Sender: FDA-Public Use
  Company Number: US-JNJFOC-20240518144

PATIENT

DRUGS (9)
  1. ACETAMINOPHEN [Suspect]
     Active Substance: ACETAMINOPHEN
     Indication: Medication overuse headache
     Route: 065
  2. NURTEC ODT [Concomitant]
     Active Substance: RIMEGEPANT SULFATE
     Indication: Migraine
     Dosage: ; TAKES IT EVERY OTHER DAY AS PROPHYLACTIC
     Route: 060
     Dates: start: 20240313
  3. BACLOFEN [Concomitant]
     Active Substance: BACLOFEN
     Indication: Spinal disorder
     Dosage: TAKES 10MG BEFORE BED
     Route: 065
     Dates: start: 20240416
  4. AUVELITY [Concomitant]
     Active Substance: BUPROPION HYDROCHLORIDE\DEXTROMETHORPHAN HYDROBROMIDE
     Indication: Depression
     Dosage: 45MG OF DEXTROMETHORPHAN AND 105MG OF BUPROPION?AND TAKES TWO PER DAY
     Route: 065
  5. DIAZEPAM [Concomitant]
     Active Substance: DIAZEPAM
     Indication: Panic attack
     Dosage: HAS BEEN ON THAT FOR OVER 10 YEARS PRESCRIBED DAILY OR?AS NEEDED
     Route: 065
  6. CYCLOBENZAPRINE [Concomitant]
     Active Substance: CYCLOBENZAPRINE
     Indication: Spinal disorder
     Route: 065
     Dates: start: 20240319
  7. CYCLOBENZAPRINE [Concomitant]
     Active Substance: CYCLOBENZAPRINE
     Indication: Muscle spasticity
  8. CYCLOBENZAPRINE [Concomitant]
     Active Substance: CYCLOBENZAPRINE
     Indication: Back pain
  9. CYCLOBENZAPRINE [Concomitant]
     Active Substance: CYCLOBENZAPRINE
     Indication: Sciatica

REACTIONS (1)
  - Drug ineffective [Unknown]
